FAERS Safety Report 9228645 (Version 1)
Quarter: 2013Q2

REPORT INFORMATION
  Report Type: Spontaneous
  Country: US (occurrence: US)
  Receive Date: 20130412
  Receipt Date: 20130412
  Transmission Date: 20140414
  Serious: Yes (Other)
  Sender: FDA-Public Use
  Company Number: US-PFIZER INC-2005016293

PATIENT
  Sex: Male

DRUGS (1)
  1. MOTRIN IB [Suspect]
     Indication: PRODUCT USED FOR UNKNOWN INDICATION
     Dosage: 24000 MG, 1 IN 1 TOTAL
     Route: 048
     Dates: start: 20050104, end: 20050104

REACTIONS (2)
  - Intentional overdose [Unknown]
  - Loss of consciousness [Unknown]
